FAERS Safety Report 4546877-0 (Version None)
Quarter: 2005Q1

REPORT INFORMATION
  Report Type: 
  Country: None (occurrence: None)
  Receive Date: 20050106
  Receipt Date: 20041122
  Transmission Date: 20050727
  Serious: Yes (Life-Threatening, Disabling)
  Sender: FDA-Public Use
  Company Number: US-MERCK-0411USA03579

PATIENT
  Age: 71 Year
  Sex: Male
  Weight: 114 kg

DRUGS (7)
  1. VIOXX [Suspect]
     Indication: OSTEOARTHRITIS
     Route: 048
     Dates: start: 20020424, end: 20020613
  2. VIOXX [Suspect]
     Route: 048
     Dates: start: 20020723
  3. VIOXX [Suspect]
     Route: 048
     Dates: start: 20031215
  4. NORVASC [Concomitant]
     Indication: BLOOD PRESSURE
     Route: 048
  5. ZIAC [Concomitant]
     Indication: BLOOD PRESSURE
     Route: 048
  6. PREVACID [Concomitant]
     Indication: GASTROOESOPHAGEAL REFLUX DISEASE
     Route: 048
  7. LIPITOR [Concomitant]
     Route: 048

REACTIONS (7)
  - ASTHENIA [None]
  - DIZZINESS [None]
  - FATIGUE [None]
  - HYPERHIDROSIS [None]
  - OEDEMA PERIPHERAL [None]
  - PAIN IN EXTREMITY [None]
  - SLUGGISHNESS [None]
